FAERS Safety Report 22054007 (Version 2)
Quarter: 2023Q1

REPORT INFORMATION
  Report Type: Spontaneous
  Country: US (occurrence: US)
  Receive Date: 20230302
  Receipt Date: 20230306
  Transmission Date: 20230417
  Serious: No
  Sender: FDA-Public Use
  Company Number: US-SUNOVION-2023SUN000357AA

PATIENT
  Age: 36 Year
  Sex: Female

DRUGS (4)
  1. LATUDA [Suspect]
     Active Substance: LURASIDONE HYDROCHLORIDE
     Dosage: 60 MG, QD
     Route: 048
  2. LATUDA [Suspect]
     Active Substance: LURASIDONE HYDROCHLORIDE
     Dosage: 30 MG (HALF OF 60MG)
     Route: 048
  3. LATUDA [Suspect]
     Active Substance: LURASIDONE HYDROCHLORIDE
     Dosage: 15 MG (QUARTER OF 60MG)
     Route: 048
  4. ABILIFY [Suspect]
     Active Substance: ARIPIPRAZOLE
     Dosage: UNK
     Route: 065

REACTIONS (11)
  - Withdrawal syndrome [Unknown]
  - Decreased activity [Unknown]
  - Memory impairment [Unknown]
  - Mania [Unknown]
  - Hyperhidrosis [Unknown]
  - Irritability [Unknown]
  - Drug hypersensitivity [Unknown]
  - Insomnia [Unknown]
  - Intentional underdose [Unknown]
  - Wrong technique in product usage process [Unknown]
  - Therapy interrupted [Unknown]
